FAERS Safety Report 16877706 (Version 37)
Quarter: 2024Q3

REPORT INFORMATION
  Report Type: Report from Study
  Country: DE (occurrence: DE)
  Receive Date: 20191002
  Receipt Date: 20240716
  Transmission Date: 20241017
  Serious: Yes (Hospitalization, Other)
  Sender: ROCHE
  Company Number: DE-ROCHE-2095674

PATIENT
  Age: 59 Year
  Sex: Female

DRUGS (17)
  1. OCREVUS [Suspect]
     Active Substance: OCRELIZUMAB
     Indication: Primary progressive multiple sclerosis
     Dosage: 182 DAYS
     Route: 042
     Dates: start: 20180314
  2. OCREVUS [Suspect]
     Active Substance: OCRELIZUMAB
     Route: 042
  3. OCREVUS [Suspect]
     Active Substance: OCRELIZUMAB
     Dosage: 4TH MAINTENANCE DOSE
     Route: 042
     Dates: start: 20200508
  4. OCREVUS [Suspect]
     Active Substance: OCRELIZUMAB
     Dosage: NEXT INFUSION WAS RECEIVED ON 29/JUL/2021
     Route: 042
     Dates: start: 20210129
  5. OCREVUS [Suspect]
     Active Substance: OCRELIZUMAB
     Route: 042
     Dates: start: 2021
  6. OCREVUS [Suspect]
     Active Substance: OCRELIZUMAB
     Route: 042
     Dates: start: 20210910
  7. OCREVUS [Suspect]
     Active Substance: OCRELIZUMAB
     Route: 042
     Dates: start: 20210720
  8. BACLOFEN [Suspect]
     Active Substance: BACLOFEN
     Indication: Muscle spasticity
     Route: 065
     Dates: end: 2019
  9. COMIRNATY (TOZINAMERAN) [Suspect]
     Active Substance: TOZINAMERAN
     Indication: COVID-19 prophylaxis
     Route: 065
  10. VARICELLA-ZOSTER VACCINE NOS [Suspect]
     Active Substance: VARICELLA-ZOSTER VACCINE
     Indication: Product used for unknown indication
     Route: 065
  11. METHYLPREDNISOLONE [Concomitant]
     Active Substance: METHYLPREDNISOLONE
     Indication: Premedication
  12. ACETAMINOPHEN [Concomitant]
     Active Substance: ACETAMINOPHEN
     Indication: Premedication
  13. DALFAMPRIDINE [Concomitant]
     Active Substance: DALFAMPRIDINE
     Dosage: 1-0-1
  14. LEVOTHYROXINE SODIUM [Concomitant]
     Active Substance: LEVOTHYROXINE SODIUM
  15. TIZANIDINE [Concomitant]
     Active Substance: TIZANIDINE
  16. TIZANIDINE [Concomitant]
     Active Substance: TIZANIDINE
  17. CITALOPRAM [Concomitant]
     Active Substance: CITALOPRAM\CITALOPRAM HYDROBROMIDE

REACTIONS (50)
  - Rhinorrhoea [Recovered/Resolved]
  - Balance disorder [Recovered/Resolved]
  - Gait disturbance [Not Recovered/Not Resolved]
  - Hypoaesthesia [Recovered/Resolved]
  - Intervertebral disc protrusion [Recovered/Resolved]
  - Spondylolisthesis [Not Recovered/Not Resolved]
  - Ligament injury [Not Recovered/Not Resolved]
  - Fall [Unknown]
  - Cervical vertebral fracture [Recovered/Resolved]
  - Bone cyst [Unknown]
  - Spinal disorder [Unknown]
  - Muscle spasticity [Not Recovered/Not Resolved]
  - Pain [Recovered/Resolved]
  - Urticaria [Recovered/Resolved]
  - Peroneal nerve palsy [Not Recovered/Not Resolved]
  - Feeling cold [Recovering/Resolving]
  - Nasopharyngitis [Recovering/Resolving]
  - Anxiety [Recovered/Resolved]
  - Panic attack [Recovered/Resolved]
  - Depression [Recovered/Resolved]
  - Tooth infection [Recovered/Resolved]
  - Sleep disorder [Recovering/Resolving]
  - Dental implantation [Recovered/Resolved]
  - Blood blister [Recovered/Resolved]
  - Haemorrhage [Recovered/Resolved]
  - Pain in extremity [Recovered/Resolved]
  - Injection site haematoma [Recovered/Resolved]
  - Trigeminal neuralgia [Not Recovered/Not Resolved]
  - Asthenia [Recovered/Resolved]
  - Headache [Recovered/Resolved]
  - Gastrointestinal infection [Not Recovered/Not Resolved]
  - Pollakiuria [Recovered/Resolved]
  - Abdominal pain upper [Recovered/Resolved]
  - Nausea [Recovered/Resolved]
  - Fatigue [Not Recovered/Not Resolved]
  - Arthralgia [Not Recovered/Not Resolved]
  - Suicidal ideation [Recovering/Resolving]
  - Gait disturbance [Not Recovered/Not Resolved]
  - Sensory disturbance [Recovered/Resolved]
  - Joint stiffness [Not Recovered/Not Resolved]
  - Skin laceration [Recovered/Resolved]
  - Memory impairment [Recovered/Resolved]
  - Loss of consciousness [Recovered/Resolved]
  - Middle insomnia [Recovered/Resolved]
  - Seizure [Recovered/Resolved]
  - Initial insomnia [Recovered/Resolved]
  - Nasopharyngitis [Recovered/Resolved]
  - Ear neoplasm [Not Recovered/Not Resolved]
  - Dizziness [Not Recovered/Not Resolved]
  - Acne [Recovered/Resolved]

NARRATIVE: CASE EVENT DATE: 20180315
